FAERS Safety Report 4692956-7 (Version None)
Quarter: 2005Q2

REPORT INFORMATION
  Report Type: 
  Country: None (occurrence: None)
  Receive Date: 20050617
  Receipt Date: 20050603
  Transmission Date: 20051028
  Serious: Yes (Disabling)
  Sender: FDA-Public Use
  Company Number: CH-JNJFOC-20050601221

PATIENT
  Age: 23 Year
  Sex: Male
  Weight: 116 kg

DRUGS (5)
  1. REMICADE [Suspect]
     Route: 042
  2. REMICADE [Suspect]
     Indication: DRUG USE FOR UNKNOWN INDICATION
     Route: 042
  3. PREDNISONE TAB [Concomitant]
     Route: 049
  4. CALCIMAGON D3 [Concomitant]
     Route: 049
  5. SANDIMMUNE [Concomitant]
     Route: 049

REACTIONS (3)
  - CERVICAL MYELOPATHY [None]
  - HYPOAESTHESIA [None]
  - MYELITIS [None]
